FAERS Safety Report 11302962 (Version 1)
Quarter: 2015Q3

REPORT INFORMATION
  Report Type: Spontaneous
  Country: US (occurrence: None)
  Receive Date: 20150723
  Receipt Date: 20150723
  Transmission Date: 20151125
  Serious: Yes (Death, Hospitalization)
  Sender: FDA-Public Use
  Company Number: None

PATIENT
  Age: 11 Year
  Sex: Male
  Weight: 42.6 kg

DRUGS (6)
  1. CYCLOPHOSPHAMIDE. [Suspect]
     Active Substance: CYCLOPHOSPHAMIDE
     Dates: end: 20120319
  2. CYTARABINE. [Suspect]
     Active Substance: CYTARABINE
     Dates: end: 20120329
  3. MERCAPTOPURINE. [Suspect]
     Active Substance: MERCAPTOPURINE
     Dates: end: 20141214
  4. DEXAMETHASONE. [Suspect]
     Active Substance: DEXAMETHASONE
     Dates: end: 20141010
  5. DOXORUBICIN HYDROCHLORIDE. [Suspect]
     Active Substance: DOXORUBICIN HYDROCHLORIDE
     Dates: end: 20120227
  6. METHOTREXATE [Suspect]
     Active Substance: METHOTREXATE
     Dates: end: 20120529

REACTIONS (8)
  - Neutropenia [None]
  - Dizziness [None]
  - Myelodysplastic syndrome transformation [None]
  - Pancytopenia [None]
  - Thrombocytopenia [None]
  - Pallor [None]
  - Anaemia [None]
  - Leukopenia [None]

NARRATIVE: CASE EVENT DATE: 20141226
